FAERS Safety Report 10358061 (Version 1)
Quarter: 2014Q3

REPORT INFORMATION
  Report Type: Report from Study
  Country: US (occurrence: US)
  Receive Date: 20140801
  Receipt Date: 20140801
  Transmission Date: 20150326
  Serious: Yes (Hospitalization, Other)
  Sender: FDA-Public Use
  Company Number: US-ABBVIE-14P-163-1265572-00

PATIENT
  Age: 50 Year
  Sex: Female
  Weight: 75.36 kg

DRUGS (3)
  1. PROTONIX [Concomitant]
     Active Substance: PANTOPRAZOLE SODIUM
     Indication: PRODUCT USED FOR UNKNOWN INDICATION
  2. HUMIRA [Suspect]
     Active Substance: ADALIMUMAB
     Indication: CROHN^S DISEASE
     Route: 058
     Dates: start: 201103, end: 201406
  3. 6-MP [Suspect]
     Active Substance: MERCAPTOPURINE
     Indication: GASTROINTESTINAL INFLAMMATION
     Dates: start: 201406, end: 201406

REACTIONS (10)
  - Diarrhoea haemorrhagic [Recovering/Resolving]
  - Crohn^s disease [Recovering/Resolving]
  - Pain [Recovered/Resolved]
  - Chills [Recovered/Resolved]
  - Gastrointestinal inflammation [Unknown]
  - Bone marrow failure [Recovering/Resolving]
  - Drug specific antibody present [Not Recovered/Not Resolved]
  - Hyperhidrosis [Recovered/Resolved]
  - Blood potassium decreased [Unknown]
  - Drug ineffective [Not Recovered/Not Resolved]

NARRATIVE: CASE EVENT DATE: 201404
